FAERS Safety Report 5761678-3 (Version None)
Quarter: 2008Q2

REPORT INFORMATION
  Report Type: 
  Country: None (occurrence: None)
  Receive Date: 20080602
  Receipt Date: 20080513
  Transmission Date: 20081010
  Serious: Yes (Hospitalization)
  Sender: FDA-Public Use
  Company Number: E-08-117

PATIENT
  Age: 50 Year
  Sex: Female

DRUGS (4)
  1. PREDNISONE [Suspect]
     Indication: RHEUMATOID ARTHRITIS
     Dosage: 15 MG  Q.I.D.  P.O.
     Route: 048
     Dates: start: 20050501
  2. PLAQUENIL [Concomitant]
  3. MENEST [Concomitant]
  4. PROZAC [Concomitant]

REACTIONS (6)
  - COUGH [None]
  - HEART RATE INCREASED [None]
  - HYPERHIDROSIS [None]
  - PHARYNGEAL OEDEMA [None]
  - RESPIRATORY DISTRESS [None]
  - SWOLLEN TONGUE [None]
